FAERS Safety Report 10476104 (Version 2)
Quarter: 2014Q4

REPORT INFORMATION
  Report Type: Spontaneous
  Country: US (occurrence: US)
  Receive Date: 20140925
  Receipt Date: 20141027
  Transmission Date: 20150528
  Serious: Yes (Other)
  Sender: FDA-Public Use
  Company Number: US-ASTELLAS-2014US013086

PATIENT
  Age: 88 Year
  Sex: Male

DRUGS (2)
  1. XTANDI [Suspect]
     Active Substance: ENZALUTAMIDE
     Route: 048
     Dates: start: 20140918
  2. XTANDI [Suspect]
     Active Substance: ENZALUTAMIDE
     Indication: PROSTATE CANCER
     Route: 048
     Dates: start: 20140815

REACTIONS (6)
  - Chest pain [Unknown]
  - Loss of consciousness [Unknown]
  - Syncope [Unknown]
  - Vomiting [Unknown]
  - Abdominal discomfort [Unknown]
  - Seizure [Unknown]

NARRATIVE: CASE EVENT DATE: 20140815
